FAERS Safety Report 8495522-0 (Version None)
Quarter: 2012Q3

REPORT INFORMATION
  Report Type: 
  Country: None (occurrence: None)
  Receive Date: 20120709
  Receipt Date: 20120703
  Transmission Date: 20120928
  Serious: Yes (Hospitalization)
  Sender: FDA-Public Use
  Company Number: KR-PFIZER INC-2012159924

PATIENT
  Age: 67 Year
  Sex: Female
  Weight: 58 kg

DRUGS (25)
  1. METHYLPREDNISOLONE [Concomitant]
     Indication: IMMUNOSUPPRESSION
     Dosage: UNK
     Dates: start: 20120419, end: 20120419
  2. MAGNESIUM HYDROXIDE [Concomitant]
     Dosage: UNK
     Dates: start: 20120115, end: 20120118
  3. FAMOTIDINE [Concomitant]
     Dosage: UNK
     Dates: start: 20111216, end: 20120111
  4. METHYLPREDNISOLONE [Concomitant]
     Dosage: UNK
     Dates: start: 20120423, end: 20120423
  5. MOSAPRIDE [Concomitant]
     Indication: PROPHYLAXIS
     Dosage: UNK
     Dates: start: 20111106, end: 20111204
  6. FLUOROURACIL [Concomitant]
     Dosage: UNK
     Dates: start: 20120312, end: 20120316
  7. FLUOROURACIL [Concomitant]
     Dosage: UNK
     Dates: start: 20120409, end: 20120413
  8. SIROLIMUS [Suspect]
     Dosage: 1 MG, 1X/DAY
     Dates: start: 20120112, end: 20120418
  9. SIROLIMUS [Suspect]
     Dosage: 1 MG, 1X/DAY
     Dates: start: 20120426
  10. PREDNISOLONE [Concomitant]
     Indication: IMMUNOSUPPRESSION
     Dosage: UNK MG, UNK
     Dates: start: 20060104, end: 20120418
  11. FAMOTIDINE [Concomitant]
     Dosage: UNK
     Dates: start: 20120115
  12. BUTYLSCOPOLAMIN [Concomitant]
     Indication: ABDOMINAL PAIN
     Dosage: UNK
     Dates: start: 20120418, end: 20120418
  13. LEUCOVORIN CALCIUM [Suspect]
     Indication: CHEMOTHERAPY
  14. PREDNISOLONE [Concomitant]
     Dosage: UNK MG, UNK
     Dates: start: 20120426
  15. MOSAPRIDE [Concomitant]
     Dosage: UNK
     Dates: start: 20120112, end: 20120418
  16. FLUOROURACIL [Concomitant]
     Indication: CHEMOTHERAPY
     Dosage: UNK
     Dates: start: 20111215, end: 20111219
  17. FLUOROURACIL [Concomitant]
     Dosage: UNK
     Dates: start: 20120213, end: 20120217
  18. MAGNESIUM HYDROXIDE [Concomitant]
     Dosage: UNK
     Dates: start: 20120119, end: 20120418
  19. FAMOTIDINE [Concomitant]
     Indication: PROPHYLAXIS
     Dosage: UNK
     Dates: start: 20111210, end: 20111215
  20. FLUOROURACIL [Concomitant]
     Dosage: UNK
     Dates: start: 20120114, end: 20120118
  21. MAGNESIUM HYDROXIDE [Concomitant]
     Indication: CONSTIPATION PROPHYLAXIS
     Dosage: 4 TABLETS DAILY
     Dates: start: 20111213, end: 20120111
  22. SIROLIMUS [Suspect]
     Indication: PROPHYLAXIS AGAINST TRANSPLANT REJECTION
     Dosage: 2 MG, 1X/DAY
     Dates: start: 20111116, end: 20120111
  23. MOSAPRIDE [Concomitant]
     Dosage: UNK
     Dates: start: 20111210, end: 20120111
  24. REBAMIPIDE [Concomitant]
     Indication: PROPHYLAXIS
     Dosage: UNK
     Dates: start: 20120112, end: 20120418
  25. REBAMIPIDE [Concomitant]
     Dosage: UNK
     Dates: start: 20120426

REACTIONS (2)
  - ILEUS [None]
  - BLOOD CREATININE INCREASED [None]
